FAERS Safety Report 15723943 (Version 3)
Quarter: 2019Q1

REPORT INFORMATION
  Report Type: Report from Study
  Country: GR (occurrence: GR)
  Receive Date: 20181214
  Receipt Date: 20190123
  Transmission Date: 20190417
  Serious: Yes (Hospitalization)
  Sender: FDA-Public Use
  Company Number: GR-CELGENEUS-GRC-20181002797

PATIENT
  Age: 69 Year
  Sex: Female
  Weight: 45 kg

DRUGS (14)
  1. IMNOVID [Suspect]
     Active Substance: POMALIDOMIDE
     Indication: PLASMA CELL MYELOMA
     Route: 048
     Dates: start: 20180914, end: 20180922
  2. LEGOFER [Concomitant]
     Active Substance: FERROUS SUCCINATE
     Indication: PRODUCT USED FOR UNKNOWN INDICATION
     Dosage: FLACON
     Route: 048
     Dates: start: 20181002, end: 20181029
  3. TRIMETHOPRIM/SULFAMETHOXAZOLE [Concomitant]
     Active Substance: SULFAMETHOXAZOLE\TRIMETHOPRIM
     Indication: PRODUCT USED FOR UNKNOWN INDICATION
     Dosage: 4 TABLESPOON
     Route: 065
     Dates: start: 20181007, end: 20181030
  4. FENTANYL. [Concomitant]
     Active Substance: FENTANYL
     Indication: PRODUCT USED FOR UNKNOWN INDICATION
     Route: 065
  5. ZOMETA [Concomitant]
     Active Substance: ZOLEDRONIC ACID
     Indication: BONE LESION
     Route: 065
  6. ORIZAL [Concomitant]
     Active Substance: AMLODIPINE BESYLATE\OLMESARTAN MEDOXOMIL
     Indication: PRODUCT USED FOR UNKNOWN INDICATION
     Dosage: 20+5MG
     Route: 065
  7. RANITIDINE. [Concomitant]
     Active Substance: RANITIDINE
     Indication: PRODUCT USED FOR UNKNOWN INDICATION
     Dosage: 4 TABLESPOON
     Route: 065
     Dates: end: 20181116
  8. T4 [Concomitant]
     Active Substance: LEVOTHYROXINE
     Indication: PRODUCT USED FOR UNKNOWN INDICATION
     Dosage: 50 UG
     Route: 065
     Dates: start: 20181017
  9. EPOITIN A [Concomitant]
     Indication: PRODUCT USED FOR UNKNOWN INDICATION
     Dosage: 40.000
     Route: 065
     Dates: start: 20181004
  10. IMNOVID [Suspect]
     Active Substance: POMALIDOMIDE
     Route: 048
     Dates: start: 20181006, end: 20181017
  11. IMNOVID [Suspect]
     Active Substance: POMALIDOMIDE
     Route: 048
     Dates: start: 20181125, end: 20181215
  12. FLUCONAZOLE. [Concomitant]
     Active Substance: FLUCONAZOLE
     Indication: PRODUCT USED FOR UNKNOWN INDICATION
     Dosage: 4 TABLESPOON
     Route: 065
     Dates: start: 20181007, end: 20181030
  13. FERRIC CARBOXYMALTOSE [Concomitant]
     Active Substance: FERRIC CARBOXYMALTOSE
     Indication: PRODUCT USED FOR UNKNOWN INDICATION
     Route: 065
     Dates: start: 20181206
  14. FERRIC PROTEIN SUCCINYLATE [Concomitant]
     Indication: IRON DEFICIENCY
     Route: 048
     Dates: start: 20181002

REACTIONS (6)
  - Urinary tract infection [Not Recovered/Not Resolved]
  - Chronic kidney disease [Not Recovered/Not Resolved]
  - Anaemia [Not Recovered/Not Resolved]
  - Deep vein thrombosis [Not Recovered/Not Resolved]
  - Device related infection [Not Recovered/Not Resolved]
  - Gastric haemorrhage [Not Recovered/Not Resolved]

NARRATIVE: CASE EVENT DATE: 20180926
